FAERS Safety Report 8833933 (Version 1)
Quarter: 2012Q4

REPORT INFORMATION
  Report Type: 
  Country: US (occurrence: US)
  Receive Date: 20121010
  Receipt Date: 20121010
  Transmission Date: 20130627
  Serious: Yes (Other)
  Sender: FDA-Public Use
  Company Number: CHPA2012US020929

PATIENT
  Sex: Female

DRUGS (1)
  1. MAALOX ANTACID/ANTIGAS MAX QDTABS ASST [Suspect]
     Indication: ULCER
     Dosage: 1 DF, PRN
     Route: 048

REACTIONS (3)
  - Ulcer [Not Recovered/Not Resolved]
  - Gastritis [Recovered/Resolved]
  - Off label use [Unknown]
